FAERS Safety Report 24051742 (Version 7)
Quarter: 2024Q4

REPORT INFORMATION
  Report Type: Spontaneous
  Country: US (occurrence: US)
  Receive Date: 20240704
  Receipt Date: 20241120
  Transmission Date: 20250115
  Serious: No
  Sender: PFIZER
  Company Number: US-PFIZER INC-PV202400085038

PATIENT
  Age: 16 Year
  Sex: Male
  Weight: 102.97 kg

DRUGS (3)
  1. GENOTROPIN [Suspect]
     Active Substance: SOMATROPIN
     Indication: Short stature
     Dosage: 4.2 MG, 1X/DAY
     Route: 058
  2. GENOTROPIN [Suspect]
     Active Substance: SOMATROPIN
     Indication: Growth hormone deficiency
     Dosage: 4.6 MG, 1X/DAY
     Route: 058
  3. VITAMIN D NOS [Concomitant]
     Active Substance: CHOLECALCIFEROL\ERGOCALCIFEROL
     Indication: Vitamin D deficiency
     Dosage: 5000 IU, DAILY

REACTIONS (4)
  - Device use error [Unknown]
  - Device issue [Unknown]
  - Device malfunction [Unknown]
  - Drug dose omission by device [Unknown]
